FAERS Safety Report 8040308-4 (Version None)
Quarter: 2012Q1

REPORT INFORMATION
  Report Type: 
  Country: None (occurrence: None)
  Receive Date: 20120111
  Receipt Date: 20111228
  Transmission Date: 20120608
  Serious: Yes (Death)
  Sender: FDA-Public Use
  Company Number: US-UCBSA-049141

PATIENT
  Age: 53 Year
  Sex: Female

DRUGS (8)
  1. ACETAMINOPHEN AND OXYCODONE HCL [Suspect]
     Route: 048
  2. CARISOPRODOL [Suspect]
     Route: 048
  3. ACETAMINOPHEN AND HYDROCODONE BITARTRATE [Suspect]
     Route: 048
  4. ALPRAZOLAM [Suspect]
     Route: 048
  5. LEVOTHYROXINE SODIUM [Suspect]
     Route: 048
  6. TOLTERODINE TARTRATE [Suspect]
     Route: 048
  7. FENTANYL [Suspect]
     Route: 062
  8. ZOLPIDEM [Suspect]
     Route: 048

REACTIONS (1)
  - COMPLETED SUICIDE [None]
